FAERS Safety Report 10641171 (Version 3)
Quarter: 2014Q4

REPORT INFORMATION
  Report Type: Spontaneous
  Country: CZ (occurrence: CZ)
  Receive Date: 20141209
  Receipt Date: 20141216
  Transmission Date: 20150529
  Serious: Yes (Other)
  Sender: FDA-Public Use
  Company Number: CZ-NOVOPROD-430946

PATIENT
  Sex: Female
  Weight: 3.98 kg

DRUGS (3)
  1. FRAXIPARIN                         /00889603/ [Concomitant]
     Indication: VENOUS THROMBOSIS
     Dosage: 0.8 ML, QD
     Route: 064
     Dates: end: 20140917
  2. LEVEMIR [Suspect]
     Active Substance: INSULIN DETEMIR
     Indication: GESTATIONAL DIABETES
     Dosage: 32 U, QD
     Route: 064
     Dates: start: 20140623, end: 20140917
  3. NOVORAPID [Suspect]
     Active Substance: INSULIN ASPART
     Indication: GESTATIONAL DIABETES
     Dosage: 6 U, QD
     Route: 064
     Dates: start: 20140623, end: 20140917

REACTIONS (2)
  - Foetal distress syndrome [Unknown]
  - Foetal exposure during pregnancy [Recovered/Resolved]

NARRATIVE: CASE EVENT DATE: 20140623
